FAERS Safety Report 24762494 (Version 1)
Quarter: 2024Q4

REPORT INFORMATION
  Report Type: Spontaneous
  Country: ES (occurrence: ES)
  Receive Date: 20241221
  Receipt Date: 20241221
  Transmission Date: 20250115
  Serious: Yes (Other)
  Sender: TEVA
  Company Number: None

PATIENT
  Age: 61 Year
  Sex: Female

DRUGS (9)
  1. LAMOTRIGINE [Suspect]
     Active Substance: LAMOTRIGINE
     Indication: Partial seizures
     Dosage: 56 TABLETS
     Route: 048
     Dates: start: 20241114, end: 20241116
  2. OLANZAPINE [Concomitant]
     Active Substance: OLANZAPINE
     Indication: Product used for unknown indication
     Dosage: 30 TABLETS
     Route: 048
     Dates: start: 20241008
  3. TRAZODONE HYDROCHLORIDE [Concomitant]
     Active Substance: TRAZODONE HYDROCHLORIDE
     Indication: Product used for unknown indication
     Dosage: 60 TABLETS
     Route: 048
     Dates: start: 20241008
  4. ATORVASTATIN CALCIUM [Concomitant]
     Active Substance: ATORVASTATIN CALCIUM
     Indication: Product used for unknown indication
     Dosage: EFG, 28 TABLETS
     Route: 048
     Dates: start: 20240415
  5. MIRTAZAPINE [Concomitant]
     Active Substance: MIRTAZAPINE
     Indication: Product used for unknown indication
     Dosage: 30 TABLETS
     Route: 048
     Dates: start: 20241008
  6. SERTRALINE [Concomitant]
     Active Substance: SERTRALINE HYDROCHLORIDE
     Indication: Product used for unknown indication
     Dosage: 60 TABLETS
     Route: 048
     Dates: start: 20241008
  7. LORMETAZEPAM [Concomitant]
     Active Substance: LORMETAZEPAM
     Indication: Product used for unknown indication
     Dosage: 20 TABLETS
     Route: 048
     Dates: start: 20230905
  8. OLANZAPINE [Concomitant]
     Active Substance: OLANZAPINE
     Indication: Product used for unknown indication
     Dosage: 56 TABLETS
     Route: 048
     Dates: start: 20241008
  9. SITAGLIPTINA METFORMINA [Concomitant]
     Indication: Product used for unknown indication
     Dosage: CINFAMED 50 MG/1,000 MG EFG, 56 TABLETS
     Route: 048
     Dates: start: 20220124

REACTIONS (1)
  - Gait disturbance [Recovered/Resolved]

NARRATIVE: CASE EVENT DATE: 20241116
